FAERS Safety Report 6408327-9 (Version None)
Quarter: 2009Q4

REPORT INFORMATION
  Report Type: 
  Country: None (occurrence: None)
  Receive Date: 20091021
  Receipt Date: 20091009
  Transmission Date: 20100525
  Serious: Yes (Hospitalization)
  Sender: FDA-Public Use
  Company Number: PHHY2009GB38970

PATIENT
  Sex: Male

DRUGS (10)
  1. CLOZARIL [Suspect]
     Indication: SCHIZOPHRENIA
     Dosage: 225 MG MANE, 200 MG NOCTE
     Route: 048
     Dates: start: 20090624, end: 20090701
  2. CLOZARIL [Suspect]
     Dosage: 225 MG, BID
     Route: 048
     Dates: start: 20090701, end: 20090716
  3. CLOZARIL [Suspect]
     Dosage: 250 MG, BID
     Route: 048
     Dates: start: 20090716, end: 20090723
  4. CLOZARIL [Suspect]
     Dosage: 300 MG, BID
     Route: 048
     Dates: start: 20090724, end: 20090728
  5. BECLOMETHASONE DIPROPIONATE [Concomitant]
     Indication: ASTHMA
     Dosage: UNK
     Dates: start: 20090313, end: 20090901
  6. VALPROATE SODIUM [Concomitant]
     Dosage: 800 MG, BID
     Route: 048
     Dates: start: 20090624, end: 20090730
  7. VALPROATE SODIUM [Concomitant]
     Dosage: 600 MG, BID
     Route: 048
     Dates: start: 20090730, end: 20090802
  8. VALPROATE SODIUM [Concomitant]
     Dosage: 400 MG, BID
     Route: 048
     Dates: start: 20090803, end: 20090807
  9. VALPROATE SODIUM [Concomitant]
     Dosage: 200 MG, BID
     Route: 048
     Dates: start: 20090808, end: 20090812
  10. VALPROATE SODIUM [Concomitant]
     Dosage: 200 MG, QD
     Route: 048
     Dates: start: 20090813, end: 20090815

REACTIONS (3)
  - CONDITION AGGRAVATED [None]
  - NEUTROPHIL COUNT DECREASED [None]
  - WHITE BLOOD CELL COUNT DECREASED [None]
